FAERS Safety Report 8900281 (Version 1)
Quarter: 2012Q4

REPORT INFORMATION
  Report Type: 
  Country: US (occurrence: US)
  Receive Date: 20121109
  Receipt Date: 20121109
  Transmission Date: 20130627
  Serious: No
  Sender: FDA-Public Use
  Company Number: US-BAYER-2012-117636

PATIENT

DRUGS (3)
  1. ALEVE CAPLET/TABLET,MIDOL EXTENDED RELIEF CAPLET [Suspect]
     Indication: HEADACHE
  2. SUDAFED [Concomitant]
  3. EXCEDRINE MIGRAINE [Concomitant]

REACTIONS (1)
  - Drug ineffective [None]
